FAERS Safety Report 4736314-5 (Version None)
Quarter: 2005Q3

REPORT INFORMATION
  Report Type: 
  Country: None (occurrence: None)
  Receive Date: 20050802
  Receipt Date: 20050720
  Transmission Date: 20060218
  Serious: Yes (Disabling)
  Sender: FDA-Public Use
  Company Number: 2005JP001397

PATIENT
  Age: 79 Year
  Sex: Female
  Weight: 41.5 kg

DRUGS (6)
  1. PROGRAF [Suspect]
     Indication: RHEUMATOID ARTHRITIS
     Dosage: 1.00 MG, U/D/QD, ORAL
     Route: 048
     Dates: start: 20050606, end: 20050614
  2. PREDNISOLON(PREDNISOLONE) TABLET [Suspect]
     Indication: RHEUMATOID ARTHRITIS
     Dosage: 5.00 MG, BID, ORAL
     Route: 048
     Dates: start: 20030908
  3. REMICADE [Suspect]
     Indication: RHEUMATOID ARTHRITIS
     Dosage: SEE IMAGE
     Route: 041
     Dates: start: 20050224, end: 20050224
  4. REMICADE [Suspect]
     Indication: RHEUMATOID ARTHRITIS
     Dosage: SEE IMAGE
     Route: 041
     Dates: start: 20050310, end: 20050310
  5. REMICADE [Suspect]
     Indication: RHEUMATOID ARTHRITIS
     Dosage: SEE IMAGE
     Route: 041
     Dates: start: 20050405, end: 20050405
  6. TAKEPRON (LANSOPRAZOLE) TABLET [Concomitant]

REACTIONS (12)
  - ARTHRALGIA [None]
  - CONTUSION [None]
  - CSF TEST ABNORMAL [None]
  - FALL [None]
  - GUILLAIN-BARRE SYNDROME [None]
  - MOVEMENT DISORDER [None]
  - OSTEOPOROSIS [None]
  - PARALYSIS [None]
  - PARAPLEGIA [None]
  - PNEUMONIA ASPIRATION [None]
  - RIB FRACTURE [None]
  - SPINAL COMPRESSION FRACTURE [None]
